FAERS Safety Report 9262873 (Version 1)
Quarter: 2013Q2

REPORT INFORMATION
  Report Type: Spontaneous
  Country: BR (occurrence: BR)
  Receive Date: 20130430
  Receipt Date: 20130430
  Transmission Date: 20140414
  Serious: Yes (Hospitalization, Other)
  Sender: FDA-Public Use
  Company Number: PHHY2013BR041877

PATIENT
  Age: 6 Year
  Sex: Male
  Weight: 25 kg

DRUGS (4)
  1. RITALINA [Suspect]
     Indication: ATTENTION DEFICIT/HYPERACTIVITY DISORDER
     Dosage: 0.5 DF, BID (HALF T TABLET, TWICE A DAY)
  2. COMBIVENT [Suspect]
     Indication: BRONCHITIS
     Dosage: 1 DF, PRN
  3. HIXIZINE [Suspect]
     Indication: HYPERSENSITIVITY
     Dosage: 5 ML, A DAY
     Route: 048
  4. AVAMYS [Concomitant]
     Indication: HYPERSENSITIVITY
     Dosage: 2 DF, QD (ONCE AT NIGHT)

REACTIONS (5)
  - Appendicitis [Recovered/Resolved]
  - Incision site pain [Not Recovered/Not Resolved]
  - Agitation [Not Recovered/Not Resolved]
  - Disturbance in attention [Not Recovered/Not Resolved]
  - Impulsive behaviour [Not Recovered/Not Resolved]
